FAERS Safety Report 5787203-9 (Version None)
Quarter: 2008Q2

REPORT INFORMATION
  Report Type: 
  Country: None (occurrence: None)
  Receive Date: 20080618
  Receipt Date: 20080609
  Transmission Date: 20081010
  Serious: Yes (Hospitalization)
  Sender: FDA-Public Use
  Company Number: 233905J08USA

PATIENT
  Age: 64 Year
  Sex: Male
  Weight: 70.3075 kg

DRUGS (12)
  1. REBIF [Suspect]
     Indication: MULTIPLE SCLEROSIS
     Dosage: 44 MCG, 3 IN 1 WEEKS, SUBCUTANEOUS
     Route: 058
     Dates: start: 20040816
  2. AZATHIOPRINE [Concomitant]
  3. FINASTERIDE [Concomitant]
  4. FLOMAX (MORNIFLUMATE) [Concomitant]
  5. TOPROL-XL [Concomitant]
  6. ASCORBIC ACID [Concomitant]
  7. VITAMIN D [Concomitant]
  8. MULTIVITAMIN WITH IRON (MULTIVITAMINS PLUS IRON) [Concomitant]
  9. FLAXSEED OIL (LINUM USITATISSIMUM SEED OIL) [Concomitant]
  10. SELENIUM (SELENIUM) [Concomitant]
  11. ACTONEL [Concomitant]
  12. SOLU-MEDROL [Concomitant]

REACTIONS (8)
  - ARTHRALGIA [None]
  - BODY TEMPERATURE INCREASED [None]
  - CHILLS [None]
  - FATIGUE [None]
  - GAIT DISTURBANCE [None]
  - OEDEMA PERIPHERAL [None]
  - POLYMYALGIA RHEUMATICA [None]
  - WEIGHT DECREASED [None]
